FAERS Safety Report 9335024 (Version 1)
Quarter: 2013Q2

REPORT INFORMATION
  Report Type: Spontaneous
  Country: BE (occurrence: BE)
  Receive Date: 20130606
  Receipt Date: 20130606
  Transmission Date: 20140414
  Serious: Yes (Hospitalization)
  Sender: FDA-Public Use
  Company Number: BE-ASTRAZENECA-2013SE37928

PATIENT
  Age: 31030 Day
  Sex: Male
  Weight: 90 kg

DRUGS (9)
  1. SEROQUEL [Suspect]
     Indication: CONFUSIONAL STATE
     Route: 048
     Dates: start: 20130425, end: 20130426
  2. SEROQUEL [Suspect]
     Indication: AGITATION
     Route: 048
     Dates: start: 20130425, end: 20130426
  3. ASAFLOW [Concomitant]
  4. CALCIUM CARBONATE [Concomitant]
  5. D-CURE [Concomitant]
  6. D VITAL CALCIUM [Concomitant]
  7. LASIX [Concomitant]
  8. LYSOMUCIL [Concomitant]
  9. OMEPRAZOLE [Concomitant]

REACTIONS (8)
  - Altered state of consciousness [Recovered/Resolved]
  - Oxygen saturation decreased [Unknown]
  - Systemic inflammatory response syndrome [Unknown]
  - Atrial fibrillation [Not Recovered/Not Resolved]
  - Hypovolaemia [Unknown]
  - Pleural effusion [Unknown]
  - Atelectasis [Unknown]
  - Hypotension [Unknown]
